FAERS Safety Report 9179155 (Version 1)
Quarter: 2013Q1

REPORT INFORMATION
  Report Type: Spontaneous
  Country: US (occurrence: US)
  Receive Date: 20130321
  Receipt Date: 20130321
  Transmission Date: 20140127
  Serious: No
  Sender: FDA-Public Use
  Company Number: US-PFIZER INC-2013089042

PATIENT
  Age: 72 Year
  Sex: Female
  Weight: 68.03 kg

DRUGS (7)
  1. AZITHROMYCIN [Suspect]
     Indication: NASOPHARYNGITIS
     Dosage: 250 MG, 1X/DAY
     Route: 048
     Dates: start: 20130108, end: 20130112
  2. AZITHROMYCIN [Suspect]
     Indication: SINUSITIS
  3. HYDROCHLOROTHIAZIDE [Concomitant]
     Indication: HYPERTENSION
     Dosage: 25 MG, 1X/DAY
  4. ATENOLOL [Concomitant]
     Indication: HYPERTENSION
     Dosage: 50 MG, 1X/DAY
  5. COMBIGAN [Concomitant]
     Indication: GLAUCOMA
     Dosage: 1 GTT, 2X/DAY
     Route: 047
  6. LATANOPROST [Concomitant]
     Indication: GLAUCOMA
     Dosage: 1 GTT, 1X/DAY
     Route: 047
  7. FOLIC ACID [Concomitant]
     Indication: VITAMIN SUPPLEMENTATION
     Dosage: 1 MG, 1X/DAY (DAILY)

REACTIONS (3)
  - Heart rate irregular [Unknown]
  - Serum ferritin increased [Unknown]
  - Arrhythmia [Unknown]
